FAERS Safety Report 8388343-0 (Version None)
Quarter: 2012Q2

REPORT INFORMATION
  Report Type: 
  Country: None (occurrence: None)
  Receive Date: 20120525
  Receipt Date: 20120516
  Transmission Date: 20120825
  Serious: Yes (Hospitalization, Other)
  Sender: FDA-Public Use
  Company Number: FR-ASTRAZENECA-2012SE31538

PATIENT
  Age: 0 Week
  Sex: Male
  Weight: 1.4 kg

DRUGS (3)
  1. TENORMIN [Suspect]
     Indication: HYPERTROPHIC CARDIOMYOPATHY
     Route: 064
     Dates: start: 20110615
  2. CORDARONE [Suspect]
     Route: 064
     Dates: start: 20111001
  3. CORDARONE [Suspect]
     Indication: HYPERTROPHIC CARDIOMYOPATHY
     Route: 064
     Dates: start: 20110615, end: 20110820

REACTIONS (5)
  - ARRHYTHMIA [None]
  - NEONATAL RESPIRATORY DISTRESS SYNDROME [None]
  - ULTRASOUND DOPPLER ABNORMAL [None]
  - FOETAL GROWTH RESTRICTION [None]
  - HYPOGLYCAEMIA NEONATAL [None]
